FAERS Safety Report 15374252 (Version 1)
Quarter: 2018Q3

REPORT INFORMATION
  Report Type: Report from Study
  Country: US (occurrence: US)
  Receive Date: 20180912
  Receipt Date: 20180912
  Transmission Date: 20181010
  Serious: No
  Sender: FDA-Public Use
  Company Number: US-ROCHE-2182060

PATIENT
  Age: 59 Year
  Sex: Female
  Weight: 66.74 kg

DRUGS (11)
  1. OCREVUS [Suspect]
     Active Substance: OCRELIZUMAB
     Dosage: SECOND INFUSION
     Route: 065
     Dates: start: 20180820
  2. OCREVUS [Suspect]
     Active Substance: OCRELIZUMAB
     Indication: RELAPSING MULTIPLE SCLEROSIS
     Route: 065
     Dates: start: 20180806
  3. NUCYNTA [Concomitant]
     Active Substance: TAPENTADOL HYDROCHLORIDE
  4. AMANTADINE. [Concomitant]
     Active Substance: AMANTADINE HYDROCHLORIDE
  5. TRAMADOL. [Concomitant]
     Active Substance: TRAMADOL
  6. TOPAMAX [Concomitant]
     Active Substance: TOPIRAMATE
  7. COLACE [Concomitant]
     Active Substance: DOCUSATE SODIUM
  8. PHENERGAN [Concomitant]
     Active Substance: PROMETHAZINE HYDROCHLORIDE
  9. BENADRYL [Concomitant]
     Active Substance: DIPHENHYDRAMINE HYDROCHLORIDE
  10. EFFEXOR [Concomitant]
     Active Substance: VENLAFAXINE HYDROCHLORIDE
  11. OMEPRAZOLE. [Concomitant]
     Active Substance: OMEPRAZOLE

REACTIONS (18)
  - Rash [Recovered/Resolved]
  - Headache [Recovered/Resolved]
  - Gingival bleeding [Unknown]
  - Cough [Not Recovered/Not Resolved]
  - Crying [Unknown]
  - Oropharyngeal pain [Unknown]
  - Irritability [Unknown]
  - Glossodynia [Unknown]
  - Palpitations [Recovered/Resolved]
  - Increased tendency to bruise [Unknown]
  - Ear pruritus [Recovered/Resolved]
  - Throat irritation [Recovered/Resolved]
  - Fatigue [Recovered/Resolved]
  - Gingival pain [Unknown]
  - Chest pain [Recovered/Resolved]
  - Contusion [Unknown]
  - Sinus disorder [Unknown]
  - Nasopharyngitis [Unknown]

NARRATIVE: CASE EVENT DATE: 20180806
